FAERS Safety Report 9457982 (Version 1)
Quarter: 2013Q3

REPORT INFORMATION
  Report Type: Spontaneous
  Country: US (occurrence: None)
  Receive Date: 20130809
  Receipt Date: 20130809
  Transmission Date: 20140515
  Serious: Yes (Death, Hospitalization)
  Sender: FDA-Public Use
  Company Number: 2013TP000455

PATIENT
  Age: 88 Year
  Sex: Female

DRUGS (5)
  1. LIDODERM (5 PCT) [Suspect]
     Indication: BACK PAIN
     Route: 061
  2. LIPITOR [Concomitant]
  3. ACCUPRIL [Concomitant]
  4. PROTONIX /01263201/ [Concomitant]
  5. ZOLOFT /01011401/ [Concomitant]

REACTIONS (1)
  - Pneumonia [None]
